FAERS Safety Report 8045706-0 (Version None)
Quarter: 2012Q1

REPORT INFORMATION
  Report Type: 
  Country: None (occurrence: None)
  Receive Date: 20120113
  Receipt Date: 20120111
  Transmission Date: 20120608
  Serious: Yes (Disabling, Other)
  Sender: FDA-Public Use
  Company Number: DE-PFIZER INC-2012007802

PATIENT
  Age: 28 Year
  Sex: Female
  Weight: 70 kg

DRUGS (1)
  1. CABERGOLINE [Suspect]
     Indication: PROLACTIN-PRODUCING PITUITARY TUMOUR
     Dosage: 0.5 MG, WEEKLY
     Route: 048
     Dates: start: 20110427, end: 20110601

REACTIONS (2)
  - ALVEOLITIS [None]
  - INTERSTITIAL LUNG DISEASE [None]
